FAERS Safety Report 4286574-2 (Version None)
Quarter: 2004Q1

REPORT INFORMATION
  Report Type: 
  Country: None (occurrence: None)
  Receive Date: 20040205
  Receipt Date: 20040123
  Transmission Date: 20041129
  Serious: Yes (Death)
  Sender: FDA-Public Use
  Company Number: 2004S1000221

PATIENT
  Sex: Male

DRUGS (2)
  1. CLOZAPINE [Suspect]
     Dosage: 62.5 MG QD, ORAL
     Route: 048
     Dates: start: 20031021, end: 20031226
  2. CLOZAPINE [Suspect]
     Dosage: 100 MG Q HS, ORAL
     Route: 048
     Dates: start: 20031021, end: 20031226

REACTIONS (1)
  - DEATH [None]
